FAERS Safety Report 15644950 (Version 1)
Quarter: 2018Q4

REPORT INFORMATION
  Report Type: Spontaneous
  Country: FR (occurrence: FR)
  Receive Date: 20181121
  Receipt Date: 20181121
  Transmission Date: 20190205
  Serious: Yes (Other)
  Sender: FDA-Public Use
  Company Number: FR-ASTRAZENECA-2018SF52142

PATIENT
  Age: 22899 Day
  Sex: Male
  Weight: 83 kg

DRUGS (1)
  1. LYNPARZA [Suspect]
     Active Substance: OLAPARIB
     Indication: NEUROENDOCRINE CARCINOMA
     Route: 048
     Dates: start: 20161006

REACTIONS (6)
  - Off label use [Unknown]
  - Atrial fibrillation [Unknown]
  - Vitamin D decreased [Unknown]
  - Malignant neoplasm progression [Unknown]
  - Metastases to lymph nodes [Unknown]
  - Product use in unapproved indication [Unknown]

NARRATIVE: CASE EVENT DATE: 20161006
